FAERS Safety Report 6576977-5 (Version None)
Quarter: 2010Q1

REPORT INFORMATION
  Report Type: 
  Country: None (occurrence: None)
  Receive Date: 20100210
  Receipt Date: 20091207
  Transmission Date: 20100710
  Serious: Yes (Hospitalization)
  Sender: FDA-Public Use
  Company Number: GB-PFIZER INC-2009306606

PATIENT
  Age: 79 Year
  Sex: Male

DRUGS (4)
  1. DETRUSITOL [Suspect]
     Indication: URINARY INCONTINENCE
     Dosage: 8 MG, 1X/DAY
  2. AMLODIPINE [Concomitant]
     Dosage: 10 MG, 1X/DAY
  3. FINASTERIDE [Concomitant]
     Dosage: 5 MG, 1X/DAY
  4. TAMSULOSIN [Concomitant]
     Dosage: 400 UG, 1X/DAY

REACTIONS (1)
  - RENAL IMPAIRMENT [None]
